APPROVED DRUG PRODUCT: CALCITRIOL
Active Ingredient: CALCITRIOL
Strength: 0.5MCG
Dosage Form/Route: CAPSULE;ORAL
Application: A204556 | Product #002
Applicant: SUN PHARMACEUTICAL INDUSTRIES LTD
Approved: Feb 21, 2019 | RLD: No | RS: No | Type: DISCN